FAERS Safety Report 5767405-8 (Version None)
Quarter: 2008Q2

REPORT INFORMATION
  Report Type: 
  Country: None (occurrence: None)
  Receive Date: 20080612
  Receipt Date: 20080603
  Transmission Date: 20081010
  Serious: Yes (Hospitalization)
  Sender: FDA-Public Use
  Company Number: FR-MERCK-0803USA00926

PATIENT
  Age: 83 Year
  Sex: Male

DRUGS (2)
  1. MODURETIC 5-50 [Suspect]
     Indication: HYPERTENSION
     Route: 048
     Dates: start: 19900101
  2. KARDEGIC [Concomitant]
     Route: 065

REACTIONS (1)
  - MUSCLE RUPTURE [None]
